FAERS Safety Report 9935315 (Version 1)
Quarter: 2014Q1

REPORT INFORMATION
  Report Type: Report from Study
  Country: AU (occurrence: AU)
  Receive Date: 20140228
  Receipt Date: 20140228
  Transmission Date: 20141002
  Serious: Yes (Other)
  Sender: FDA-Public Use
  Company Number: AU-PFIZER INC-2014047894

PATIENT
  Age: 78 Year
  Sex: Male
  Weight: 72 kg

DRUGS (11)
  1. PREGABALIN [Suspect]
     Dosage: 75 MG, 2X/DAY
     Dates: start: 20131216, end: 20131222
  2. PREGABALIN [Suspect]
     Dosage: 150 MG, 2X/DAY
     Dates: start: 20131223, end: 20140119
  3. PREGABALIN [Suspect]
     Dosage: 75 MG, 2X/DAY
     Dates: start: 20140120, end: 20140126
  4. PREGABALIN [Suspect]
     Dosage: 150 MG, 2X/DAY
     Dates: start: 20140127, end: 20140209
  5. PREGABALIN [Suspect]
     Dosage: 75 MG, 2X/DAY
     Dates: start: 20140210, end: 20140213
  6. PANADOL OSTEO [Concomitant]
     Dosage: 665 MG, UNK
  7. ACETYLSALICYLIC ACID [Concomitant]
     Dosage: 100 MG, UNK
  8. ROSUVASTATIN [Concomitant]
     Dosage: 40 MG, UNK
  9. EZETIMIBE [Concomitant]
     Dosage: 10 MG, UNK
  10. LANSOPRAZOLE [Concomitant]
     Dosage: 20 MG, AS NEEDED
  11. AMLODIPINE/TELMISARTAN [Concomitant]
     Dosage: 40/5

REACTIONS (1)
  - Drug withdrawal syndrome [Recovered/Resolved]
